FAERS Safety Report 5373365-4 (Version None)
Quarter: 2007Q2

REPORT INFORMATION
  Report Type: 
  Country: None (occurrence: None)
  Receive Date: 20070628
  Receipt Date: 20070621
  Transmission Date: 20071010
  Serious: Yes (Death, Hospitalization)
  Sender: FDA-Public Use
  Company Number: US-JNJFOC-20060700414

PATIENT
  Sex: Female
  Weight: 90.72 kg

DRUGS (12)
  1. ORTHO EVRA [Suspect]
     Indication: MENSTRUATION IRREGULAR
     Route: 062
  2. TESTOSTERONE 2% CREAM [Concomitant]
     Indication: LIBIDO DECREASED
  3. ADVAIR DISKUS 100/50 [Concomitant]
     Indication: MULTIPLE ALLERGIES
  4. ADVAIR DISKUS 100/50 [Concomitant]
     Indication: ASTHMA
  5. SINGULAIR [Concomitant]
     Indication: MULTIPLE ALLERGIES
  6. SINGULAIR [Concomitant]
     Indication: ASTHMA
  7. ZYRTEC [Concomitant]
     Indication: MULTIPLE ALLERGIES
  8. ZYRTEC [Concomitant]
     Indication: ASTHMA
  9. ACETAMINOPHEN [Concomitant]
     Indication: DRUG USE FOR UNKNOWN INDICATION
  10. TESTOSTERONE [Concomitant]
     Indication: LIBIDO DECREASED
  11. AMITRIPTYLINE HCL [Concomitant]
  12. PSEUDOEPHEDRINE HCL [Concomitant]

REACTIONS (1)
  - PULMONARY EMBOLISM [None]
